FAERS Safety Report 9837642 (Version 1)
Quarter: 2014Q1

REPORT INFORMATION
  Report Type: Spontaneous
  Country: US (occurrence: US)
  Receive Date: 20140123
  Receipt Date: 20140123
  Transmission Date: 20141002
  Serious: No
  Sender: FDA-Public Use
  Company Number: US-009507513-1401USA001242

PATIENT
  Age: 64 Year
  Sex: Female

DRUGS (2)
  1. AZASITE [Suspect]
     Indication: BLEPHARITIS
     Route: 047
  2. BLEPH-10 [Suspect]
     Indication: BLEPHARITIS
     Route: 047

REACTIONS (2)
  - Hypersensitivity [Not Recovered/Not Resolved]
  - Drug dose omission [Unknown]
